FAERS Safety Report 16410699 (Version 1)
Quarter: 2019Q2

REPORT INFORMATION
  Report Type: Spontaneous
  Country: DK (occurrence: DK)
  Receive Date: 20190610
  Receipt Date: 20190610
  Transmission Date: 20190711
  Serious: Yes (Hospitalization)
  Sender: FDA-Public Use
  Company Number: DK-TEVA-2019-DK-1059949

PATIENT
  Age: 51 Year
  Sex: Male

DRUGS (8)
  1. AMLODIPINE [Concomitant]
     Active Substance: AMLODIPINE BESYLATE
     Indication: HYPERTENSION
     Route: 048
     Dates: start: 20160317
  2. CORODIL [Concomitant]
     Indication: HYPERTENSION
     Route: 048
  3. LOPID [Concomitant]
     Active Substance: GEMFIBROZIL
     Indication: HYPERCHOLESTEROLAEMIA
     Dosage: 1200 MILLIGRAM FOR 1 DAYS STYRKE: 600MG
     Route: 048
     Dates: start: 20160316, end: 20161202
  4. CENTYL MITE MED KALIUMKLORID [Concomitant]
     Indication: HYPERTENSION
     Route: 048
  5. BIOCLAVID [Suspect]
     Active Substance: AMOXICILLIN\CLAVULANIC ACID
     Indication: EMPHYSEMA
     Dates: start: 20160606
  6. CORODIL [Concomitant]
     Indication: HYPERTENSION
     Route: 048
  7. METRONIDAZOLE. [Suspect]
     Active Substance: METRONIDAZOLE
     Indication: EMPHYSEMA
     Dates: start: 20160606
  8. METFORMIN [Concomitant]
     Active Substance: METFORMIN HYDROCHLORIDE
     Indication: TYPE 2 DIABETES MELLITUS
     Dosage: STYRKE: 500MG
     Route: 048
     Dates: start: 20160316

REACTIONS (1)
  - Hypomania [Unknown]

NARRATIVE: CASE EVENT DATE: 201606
